FAERS Safety Report 12509066 (Version 1)
Quarter: 2016Q2

REPORT INFORMATION
  Report Type: Spontaneous
  Country: US (occurrence: US)
  Receive Date: 20160629
  Receipt Date: 20160629
  Transmission Date: 20160815
  Serious: No
  Sender: FDA-Public Use
  Company Number: US-MAYNE PHARMA-2015MYN000098

PATIENT
  Age: 46 Year
  Sex: Female
  Weight: 66 kg

DRUGS (6)
  1. KEPPRA [Concomitant]
     Active Substance: LEVETIRACETAM
     Dosage: 3000 MG, QD
     Route: 048
  2. VIMPAT [Concomitant]
     Active Substance: LACOSAMIDE
     Dosage: 600 MG, QD
     Route: 048
  3. BROMFENAC OPHTHALMIC SOLUTION, 0.09% [Suspect]
     Active Substance: BROMFENAC SODIUM
     Indication: CONJUNCTIVAL CYST
     Dosage: ONE DROP INTO RIGHT EYE TWICE A DAY FOR 15 DAYS
     Route: 047
     Dates: start: 20150927
  4. PATANOL [Concomitant]
     Active Substance: OLOPATADINE HYDROCHLORIDE
     Indication: CONJUNCTIVAL CYST
     Dosage: 5 ML, BID IN EYE FOR 7 DAYS
     Route: 047
  5. ONFI [Concomitant]
     Active Substance: CLOBAZAM
     Dosage: 40 MG, QD
     Route: 048
  6. LYRICA [Concomitant]
     Active Substance: PREGABALIN
     Indication: SEIZURE
     Dosage: 200 MG, TID
     Route: 048

REACTIONS (2)
  - Drug ineffective for unapproved indication [Not Recovered/Not Resolved]
  - Off label use [Not Recovered/Not Resolved]

NARRATIVE: CASE EVENT DATE: 20150927
